FAERS Safety Report 9943275 (Version 7)
Quarter: 2014Q3

REPORT INFORMATION
  Report Type: Report from Study
  Country: MX (occurrence: MX)
  Receive Date: 20140303
  Receipt Date: 20140902
  Transmission Date: 20150326
  Serious: Yes (Hospitalization)
  Sender: FDA-Public Use
  Company Number: PHHY2014MX024841

PATIENT
  Age: 44 Year
  Sex: Female
  Weight: 103 kg

DRUGS (5)
  1. GILENYA [Suspect]
     Active Substance: FINGOLIMOD HYDROCHLORIDE
     Dosage: 0.5 MG, QD
     Route: 048
     Dates: start: 20140305
  2. ATORVASTATINA [Concomitant]
     Active Substance: ATORVASTATIN
     Indication: BLOOD CHOLESTEROL
     Dosage: 1 DF, DAILY
     Dates: start: 201402
  3. GILENYA [Suspect]
     Active Substance: FINGOLIMOD HYDROCHLORIDE
     Indication: MULTIPLE SCLEROSIS
     Dosage: 0.5 MG, QD
     Route: 048
     Dates: start: 201307, end: 201401
  4. CLONAZEPAN [Concomitant]
     Active Substance: CLONAZEPAM
     Indication: DEPRESSION
     Dosage: 4 DRP, UNK
     Route: 048
     Dates: start: 201007
  5. VENLAFAXIN [Concomitant]
     Active Substance: VENLAFAXINE HYDROCHLORIDE
     Dosage: 1 DF, QD
     Route: 048
     Dates: start: 201007

REACTIONS (34)
  - Gait disturbance [Recovering/Resolving]
  - Fluid retention [Not Recovered/Not Resolved]
  - Limb discomfort [Recovering/Resolving]
  - Hypotension [Not Recovered/Not Resolved]
  - Nasopharyngitis [Unknown]
  - Heart rate decreased [Not Recovered/Not Resolved]
  - Asthenia [Recovering/Resolving]
  - Overweight [Not Recovered/Not Resolved]
  - Sleep disorder [Recovering/Resolving]
  - Blood glucose abnormal [Recovering/Resolving]
  - Pain [Not Recovered/Not Resolved]
  - Arthralgia [Not Recovered/Not Resolved]
  - Swelling [Not Recovered/Not Resolved]
  - Malaise [Not Recovered/Not Resolved]
  - Hunger [Recovering/Resolving]
  - Pain in extremity [Not Recovered/Not Resolved]
  - Feeling abnormal [Recovering/Resolving]
  - Eye swelling [Not Recovered/Not Resolved]
  - Weight decreased [Not Recovered/Not Resolved]
  - Back pain [Not Recovered/Not Resolved]
  - Multiple sclerosis relapse [Not Recovered/Not Resolved]
  - Fatigue [Not Recovered/Not Resolved]
  - Disorientation [Recovering/Resolving]
  - Peripheral swelling [Not Recovered/Not Resolved]
  - Insomnia [Not Recovered/Not Resolved]
  - Somnolence [Not Recovered/Not Resolved]
  - Contusion [Not Recovered/Not Resolved]
  - Headache [Not Recovered/Not Resolved]
  - Memory impairment [Recovering/Resolving]
  - Fall [Not Recovered/Not Resolved]
  - Blood triglycerides increased [Not Recovered/Not Resolved]
  - Immunodeficiency [Not Recovered/Not Resolved]
  - Influenza [Not Recovered/Not Resolved]
  - Drug ineffective [Not Recovered/Not Resolved]

NARRATIVE: CASE EVENT DATE: 201405
